FAERS Safety Report 10387521 (Version 1)
Quarter: 2014Q3

REPORT INFORMATION
  Report Type: Spontaneous
  Country: US (occurrence: US)
  Receive Date: 20140815
  Receipt Date: 20140815
  Transmission Date: 20150326
  Serious: No
  Sender: FDA-Public Use
  Company Number: US-TARO-2014P1000028

PATIENT
  Age: 58 Year
  Sex: Male

DRUGS (4)
  1. JOCK ITCH [Suspect]
     Active Substance: CLOTRIMAZOLE\TOLNAFTATE
     Indication: TINEA CRURIS
     Route: 061
     Dates: start: 2003
  2. JOCK ITCH [Suspect]
     Active Substance: CLOTRIMAZOLE\TOLNAFTATE
     Route: 061
     Dates: start: 201310, end: 201310
  3. LAMISIL [Suspect]
     Active Substance: TERBINAFINE HYDROCHLORIDE
     Indication: TINEA PEDIS
     Route: 061
     Dates: start: 2003
  4. LAMISIL [Suspect]
     Active Substance: TERBINAFINE HYDROCHLORIDE
     Route: 061
     Dates: start: 20131128, end: 20131129

REACTIONS (1)
  - Drug effect decreased [Unknown]
